FAERS Safety Report 15960260 (Version 1)
Quarter: 2019Q1

REPORT INFORMATION
  Report Type: Spontaneous
  Country: US (occurrence: US)
  Receive Date: 20190214
  Receipt Date: 20190214
  Transmission Date: 20190417
  Serious: No
  Sender: FDA-Public Use
  Company Number: US-ROCHE-2206878

PATIENT
  Sex: Female

DRUGS (7)
  1. ERIVEDGE [Suspect]
     Active Substance: VISMODEGIB
     Indication: BASAL CELL CARCINOMA
     Route: 048
  2. ONDASETRON [Concomitant]
     Active Substance: ONDANSETRON
  3. ELIQUIS [Concomitant]
     Active Substance: APIXABAN
  4. BENADRYL [Concomitant]
     Active Substance: DIPHENHYDRAMINE HYDROCHLORIDE
  5. PROMETHAZINE [Concomitant]
     Active Substance: PROMETHAZINE\PROMETHAZINE HYDROCHLORIDE
  6. ANASTROZOLE. [Concomitant]
     Active Substance: ANASTROZOLE
  7. ERBITUX [Concomitant]
     Active Substance: CETUXIMAB

REACTIONS (1)
  - Liver function test abnormal [Unknown]
